FAERS Safety Report 5594089-4 (Version None)
Quarter: 2008Q1

REPORT INFORMATION
  Report Type: 
  Country: None (occurrence: None)
  Receive Date: 20080116
  Receipt Date: 20080108
  Transmission Date: 20080703
  Serious: Yes (Hospitalization)
  Sender: FDA-Public Use
  Company Number: MY-GENENTECH-253972

PATIENT
  Sex: Female
  Weight: 70 kg

DRUGS (4)
  1. BLINDED BEVACIZUMAB [Suspect]
     Indication: BREAST CANCER METASTATIC
     Dosage: 1027 MG, Q3W
     Route: 042
     Dates: start: 20071012
  2. BLINDED NO STUDY DRUG ADMINISTERED [Suspect]
     Indication: BREAST CANCER METASTATIC
     Dosage: 1027 MG, Q3W
     Route: 042
     Dates: start: 20071012
  3. BLINDED PLACEBO [Suspect]
     Indication: BREAST CANCER METASTATIC
     Dosage: 1027 MG, Q3W
     Route: 042
     Dates: start: 20071012
  4. VINORELBINE [Suspect]
     Indication: BREAST CANCER METASTATIC
     Dosage: 34 MG, UNK
     Dates: start: 20071012

REACTIONS (1)
  - PYREXIA [None]
